FAERS Safety Report 5608243-6 (Version None)
Quarter: 2008Q1

REPORT INFORMATION
  Report Type: 
  Country: None (occurrence: None)
  Receive Date: 20080125
  Receipt Date: 20080111
  Transmission Date: 20080703
  Serious: Yes (Hospitalization)
  Sender: FDA-Public Use
  Company Number: SPV1-2008-00079

PATIENT
  Age: 28 Year
  Sex: Female

DRUGS (15)
  1. ANAGRELIDE HYDROCHLORIDE [Suspect]
     Dosage: 0.5 MG, ORAL
     Route: 048
     Dates: start: 20060901, end: 20070601
  2. CALCIPARINE [Concomitant]
  3. LASILIX /00032601/ (FUROSEMIDE) [Concomitant]
  4. SPECIAFOLDINE (FOLIC ACID) [Concomitant]
  5. TOPALGIC /00599202/ (TRAMADOL HYDROCHLORIDE) [Concomitant]
  6. AMLODIPINE BESYLATE [Concomitant]
  7. ADVIL /001109201/ (IBUPROFEN) [Concomitant]
  8. OFLOCET /00731801/ (OFLOXACIN) [Concomitant]
  9. MORPHINE SULFATE [Concomitant]
  10. IRBESARTAN [Concomitant]
  11. EUPRESSYL /00631801/ (URAPIDIL) [Concomitant]
  12. FORLAX (MACROGOL) [Concomitant]
  13. LEXOMIL (BROMAZEPAM) [Concomitant]
  14. DAFALGAN /00116401/ (CODEINE PHOSPHATE, PARACETAMOL) [Concomitant]
  15. HYDREA [Concomitant]

REACTIONS (6)
  - CUTANEOUS VASCULITIS [None]
  - OEDEMA PERIPHERAL [None]
  - SKIN EXFOLIATION [None]
  - SKIN NECROSIS [None]
  - TELANGIECTASIA [None]
  - ULCER [None]
